FAERS Safety Report 14341545 (Version 7)
Quarter: 2018Q2

REPORT INFORMATION
  Report Type: Spontaneous
  Country: DE (occurrence: DE)
  Receive Date: 20180102
  Receipt Date: 20180622
  Transmission Date: 20180711
  Serious: Yes (Life-Threatening, Hospitalization, Other)
  Sender: FDA-Public Use
  Company Number: DE-SUN PHARMACEUTICAL INDUSTRIES LTD-2017R1-151654

PATIENT
  Age: 20 Year
  Sex: Female

DRUGS (14)
  1. AMOXICILLIN. [Suspect]
     Active Substance: AMOXICILLIN
     Indication: PYREXIA
  2. PREDNISONE. [Concomitant]
     Active Substance: PREDNISONE
     Indication: RASH
  3. LEVOCETIRIZINE [Concomitant]
     Active Substance: LEVOCETIRIZINE
     Indication: RASH
  4. PREDNISONE. [Concomitant]
     Active Substance: PREDNISONE
     Indication: HYPERSENSITIVITY
     Route: 065
  5. CIPROFLOXACIN. [Suspect]
     Active Substance: CIPROFLOXACIN
     Indication: PYREXIA
  6. ACETAMINOPHEN. [Suspect]
     Active Substance: ACETAMINOPHEN
     Dosage: 2 G, DAILY, APPROXIMATELY 1 WEEK
     Route: 065
  7. LEVOCETIRIZINE [Concomitant]
     Active Substance: LEVOCETIRIZINE
     Indication: HYPERSENSITIVITY
     Route: 065
  8. ACETAMINOPHEN. [Suspect]
     Active Substance: ACETAMINOPHEN
     Indication: PYREXIA
     Dosage: UNK
     Route: 065
  9. AMOXICILLIN. [Suspect]
     Active Substance: AMOXICILLIN
     Indication: ODYNOPHAGIA
     Route: 065
  10. ASPIRIN. [Concomitant]
     Active Substance: ASPIRIN
     Indication: PYREXIA
     Route: 065
  11. CIPROFLOXACIN. [Suspect]
     Active Substance: CIPROFLOXACIN
     Indication: ODYNOPHAGIA
     Route: 065
  12. CEFAZOLIN [Suspect]
     Active Substance: CEFAZOLIN
     Indication: ODYNOPHAGIA
     Route: 042
  13. CEFAZOLIN [Suspect]
     Active Substance: CEFAZOLIN
     Indication: PYREXIA
  14. CLINDAMYCIN. [Suspect]
     Active Substance: CLINDAMYCIN
     Indication: ANTIBIOTIC THERAPY
     Route: 065

REACTIONS (7)
  - Hepatic encephalopathy [Recovered/Resolved]
  - Rash [Recovered/Resolved]
  - Acute hepatic failure [Recovered/Resolved]
  - Hypersensitivity [Unknown]
  - Drug-induced liver injury [Recovered/Resolved]
  - Pruritus generalised [Unknown]
  - Lymphadenopathy [Recovered/Resolved]
